FAERS Safety Report 15212045 (Version 1)
Quarter: 2018Q3

REPORT INFORMATION
  Report Type: Spontaneous
  Country: DE (occurrence: DE)
  Receive Date: 20180730
  Receipt Date: 20180730
  Transmission Date: 20181010
  Serious: Yes (Death, Congenital Anomaly, Other)
  Sender: FDA-Public Use
  Company Number: DE-PAN-2018-000402

PATIENT

DRUGS (14)
  1. ACETYLSALICYLIC ACID [Suspect]
     Active Substance: ASPIRIN
  2. ALISKIREN [Suspect]
     Active Substance: ALISKIREN
  3. SALBUTAMOL [Suspect]
     Active Substance: ALBUTEROL
  4. HYDROXYCHLOROQUINE [Suspect]
     Active Substance: HYDROXYCHLOROQUINE
  5. SIMVASTATIN. [Suspect]
     Active Substance: SIMVASTATIN
  6. TORASEMIDE [Suspect]
     Active Substance: TORSEMIDE
  7. NICOTINE. [Suspect]
     Active Substance: NICOTINE
  8. PREDNISOLONE. [Suspect]
     Active Substance: PREDNISOLONE
  9. METAMIZOLE [Suspect]
     Active Substance: METAMIZOLE
  10. EZETIMIBE. [Suspect]
     Active Substance: EZETIMIBE
  11. TACROLIMUS. [Suspect]
     Active Substance: TACROLIMUS
  12. RAMIPRIL. [Suspect]
     Active Substance: RAMIPRIL
  13. PANTOPRAZOLE [Suspect]
     Active Substance: PANTOPRAZOLE
  14. XARELTO [Suspect]
     Active Substance: RIVAROXABAN

REACTIONS (4)
  - Foetal exposure during pregnancy [Fatal]
  - Truncus arteriosus persistent [Fatal]
  - Death neonatal [Fatal]
  - Ventricular septal defect [Fatal]
